FAERS Safety Report 18835277 (Version 1)
Quarter: 2021Q1

REPORT INFORMATION
  Report Type: Spontaneous
  Country: US (occurrence: US)
  Receive Date: 20210203
  Receipt Date: 20210203
  Transmission Date: 20210419
  Serious: No
  Sender: FDA-Public Use
  Company Number: US-ALLERGAN-2045865US

PATIENT
  Age: 43 Year
  Sex: Female

DRUGS (3)
  1. BOTOX COSMETIC [Suspect]
     Active Substance: ONABOTULINUMTOXINA
     Indication: SKIN WRINKLING
     Dosage: 30 UNITS, SINGLE
     Route: 030
     Dates: start: 20201109, end: 20201109
  2. BOTOX COSMETIC [Suspect]
     Active Substance: ONABOTULINUMTOXINA
     Indication: SKIN WRINKLING
     Dosage: 12.5 UNITS, SINGLE
     Route: 030
     Dates: start: 20201109, end: 20201109
  3. BOTOX COSMETIC [Suspect]
     Active Substance: ONABOTULINUMTOXINA
     Indication: SKIN WRINKLING
     Dosage: 20 UNITS, SINGLE
     Route: 030
     Dates: start: 20201109, end: 20201109

REACTIONS (2)
  - Pruritus [Recovered/Resolved]
  - Urticaria [Recovering/Resolving]

NARRATIVE: CASE EVENT DATE: 20201111
